FAERS Safety Report 26125300 (Version 1)
Quarter: 2025Q4

REPORT INFORMATION
  Report Type: Report from Study
  Country: JP (occurrence: JP)
  Receive Date: 20251205
  Receipt Date: 20251205
  Transmission Date: 20260117
  Serious: Yes (Hospitalization)
  Sender: EISAI
  Company Number: JP-Eisai-202511313_LEQ_P_1

PATIENT
  Age: 82 Year
  Sex: Female
  Weight: 38.6 kg

DRUGS (7)
  1. LEQEMBI [Suspect]
     Active Substance: LECANEMAB-IRMB
     Indication: Cognitive disorder
     Route: 041
     Dates: start: 20250417
  2. LEQEMBI [Suspect]
     Active Substance: LECANEMAB-IRMB
     Route: 041
     Dates: start: 20250515, end: 20250515
  3. LUNESTA [Concomitant]
     Active Substance: ESZOPICLONE
     Route: 048
  4. RABEPRAZOLE SODIUM [Concomitant]
     Active Substance: RABEPRAZOLE SODIUM
     Dosage: DOSE UNKNOWN
     Route: 048
  5. CANDESARTAN [Concomitant]
     Active Substance: CANDESARTAN
     Dosage: DOSE UNKNOWN
     Route: 048
  6. SODIUM FERROUS CITRATE [Concomitant]
     Active Substance: SODIUM FERROUS CITRATE
     Dosage: DOSE UNKNOWN
     Route: 048
  7. RISEDRONATE SODIUM [Concomitant]
     Active Substance: RISEDRONATE SODIUM
     Dosage: DOSE UNKNOWN
     Route: 048

REACTIONS (3)
  - Malaise [Recovered/Resolved]
  - Infusion related reaction [Recovered/Resolved]
  - Decreased appetite [Recovered/Resolved]

NARRATIVE: CASE EVENT DATE: 20250417
